FAERS Safety Report 5635379-6 (Version None)
Quarter: 2008Q1

REPORT INFORMATION
  Report Type: 
  Country: None (occurrence: None)
  Receive Date: 20080222
  Receipt Date: 20080213
  Transmission Date: 20080703
  Serious: Yes (Other)
  Sender: FDA-Public Use
  Company Number: JP-PFIZER INC-2008010177

PATIENT
  Sex: Male

DRUGS (6)
  1. ZYVOX [Suspect]
     Indication: STAPHYLOCOCCAL INFECTION
     Dosage: DAILY DOSE:1200MG
     Route: 042
     Dates: start: 20080111, end: 20080115
  2. DALACIN S [Suspect]
     Indication: STAPHYLOCOCCAL INFECTION
     Dosage: DAILY DOSE:1200MG
     Route: 042
     Dates: start: 20071222, end: 20080111
  3. FOSMICIN [Concomitant]
     Dosage: DAILY DOSE:4GRAM
     Dates: start: 20071227, end: 20080111
  4. VANCOMYCIN [Concomitant]
     Dates: start: 20080107, end: 20080110
  5. LASIX [Concomitant]
     Route: 042
     Dates: start: 20071229, end: 20080110
  6. FAMOTIDINE [Concomitant]
     Route: 042
     Dates: start: 20071226, end: 20080110

REACTIONS (2)
  - CONVULSION [None]
  - DRUG INEFFECTIVE [None]
